FAERS Safety Report 4336474-4 (Version None)
Quarter: 2004Q2

REPORT INFORMATION
  Report Type: 
  Country: None (occurrence: None)
  Receive Date: 20040407
  Receipt Date: 20040322
  Transmission Date: 20050107
  Serious: Yes (Disabling, Other)
  Sender: FDA-Public Use
  Company Number: US_990115935

PATIENT
  Age: 64 Year
  Sex: Male
  Weight: 73 kg

DRUGS (4)
  1. HUMULIN N [Suspect]
     Indication: DIABETES MELLITUS
     Dosage: 42 U DAY
     Dates: start: 19970101
  2. ILETIN-BEEF/PORK NPH [Suspect]
     Indication: DIABETES MELLITUS
     Dosage: 44 U/1 DAY
  3. HUMULIN L [Suspect]
     Indication: DIABETES MELLITUS
     Dosage: 44 U/DAY
     Dates: start: 19960101
  4. HUMULIN R [Suspect]

REACTIONS (7)
  - ABNORMAL SENSATION IN EYE [None]
  - ASTHENIA [None]
  - BLINDNESS UNILATERAL [None]
  - DIABETES MELLITUS INADEQUATE CONTROL [None]
  - EYE HAEMORRHAGE [None]
  - FEELING ABNORMAL [None]
  - HEADACHE [None]
